FAERS Safety Report 5905556-5 (Version None)
Quarter: 2008Q4

REPORT INFORMATION
  Report Type: 
  Country: None (occurrence: None)
  Receive Date: 20081002
  Receipt Date: 20080923
  Transmission Date: 20090506
  Serious: Yes (Other)
  Sender: FDA-Public Use
  Company Number: US-ALLERGAN-0807623US

PATIENT
  Age: 61 Year
  Sex: Male

DRUGS (7)
  1. BOTOX [Suspect]
     Indication: DYSTONIA
     Dosage: UNK, SINGLE
     Route: 030
  2. VALIUM [Concomitant]
     Dosage: 5 MG, UNK
  3. MICARDIS [Concomitant]
     Indication: HYPERTENSION
     Dosage: 40 MG, QD
     Route: 048
  4. ARTANE [Concomitant]
     Indication: BLEPHAROSPASM
     Dosage: 4 MG, TID
     Route: 048
  5. SINEMET [Concomitant]
     Indication: BLEPHAROSPASM
     Dosage: UNK, TID
     Route: 048
  6. HYDROCODONE BITARTRATE [Concomitant]
     Indication: PAIN
     Dosage: UNK, PRN
     Route: 048
  7. CARAFATE [Concomitant]
     Indication: DYSPEPSIA
     Dosage: UNK, TID
     Route: 048

REACTIONS (7)
  - DYSPHAGIA [None]
  - DYSPNOEA [None]
  - EYELID PTOSIS [None]
  - HYPOAESTHESIA FACIAL [None]
  - HYPOAESTHESIA TEETH [None]
  - MUSCULAR WEAKNESS [None]
  - SPEECH DISORDER [None]
